FAERS Safety Report 4585829-1 (Version None)
Quarter: 2005Q1

REPORT INFORMATION
  Report Type: 
  Country: None (occurrence: None)
  Receive Date: 20050217
  Receipt Date: 20041119
  Transmission Date: 20050727
  Serious: Yes (Hospitalization, Disabling)
  Sender: FDA-Public Use
  Company Number: FR-SANOFI-SYNTHELABO-A02200403448

PATIENT
  Age: 41 Year
  Sex: Female

DRUGS (5)
  1. DOLIPRANE [Concomitant]
     Route: 048
     Dates: end: 20041001
  2. CACIT D3 [Concomitant]
     Route: 048
     Dates: end: 20041001
  3. PLAQUENIL [Suspect]
     Indication: SLE ARTHRITIS
     Dosage: 400 MG
     Route: 048
     Dates: start: 20020101, end: 20041001
  4. CORTANCYL [Concomitant]
     Route: 048
     Dates: start: 20020101, end: 20041001
  5. LAMICTAL [Suspect]
     Indication: EPILEPSY
     Dosage: 50 MG
     Route: 048
     Dates: start: 20040922, end: 20041001

REACTIONS (23)
  - CHOLESTASIS [None]
  - CONJUNCTIVITIS [None]
  - CYTOLYTIC HEPATITIS [None]
  - DRUG RASH WITH EOSINOPHILIA AND SYSTEMIC SYMPTOMS [None]
  - DRUG TOXICITY [None]
  - FIBRIN DEGRADATION PRODUCTS INCREASED [None]
  - HAEMORRHAGE [None]
  - HEPATIC FAILURE [None]
  - HYPERSENSITIVITY [None]
  - HYPERTHERMIA [None]
  - ISCHAEMIA [None]
  - LOSS OF CONSCIOUSNESS [None]
  - MUSCLE ATROPHY [None]
  - NYSTAGMUS [None]
  - PANCREATITIS ACUTE [None]
  - POLYNEUROPATHY [None]
  - RAYNAUD'S PHENOMENON [None]
  - RENAL FAILURE ACUTE [None]
  - RESPIRATORY ALKALOSIS [None]
  - RHABDOMYOLYSIS [None]
  - STREPTOCOCCAL SEPSIS [None]
  - THROMBOCYTOPENIA [None]
  - VIRAL INFECTION [None]
